FAERS Safety Report 15093007 (Version 2)
Quarter: 2019Q1

REPORT INFORMATION
  Report Type: Spontaneous
  Country: US (occurrence: US)
  Receive Date: 20180629
  Receipt Date: 20190130
  Transmission Date: 20190417
  Serious: Yes (Hospitalization, Other)
  Sender: FDA-Public Use
  Company Number: US-PFIZER INC-2018260487

PATIENT
  Age: 56 Year
  Sex: Female
  Weight: 83.1 kg

DRUGS (2)
  1. REVATIO [Suspect]
     Active Substance: SILDENAFIL CITRATE
     Indication: HYPERTENSION
     Dosage: 40 MG, 3X/DAY ( 2 TABLETS OF 20MG EVERY 8  HOURS)
     Route: 048
     Dates: start: 20190107
  2. REVATIO [Suspect]
     Active Substance: SILDENAFIL CITRATE
     Indication: PULMONARY HYPERTENSION
     Dosage: 20 MG, 3X/DAY
     Route: 048
     Dates: start: 201804

REACTIONS (4)
  - Ventricular tachycardia [Not Recovered/Not Resolved]
  - Dyspnoea [Unknown]
  - Blood pressure fluctuation [Unknown]
  - Prescribed overdose [Unknown]

NARRATIVE: CASE EVENT DATE: 20180517
